FAERS Safety Report 5786445-6 (Version None)
Quarter: 2008Q2

REPORT INFORMATION
  Report Type: 
  Country: None (occurrence: None)
  Receive Date: 20080624
  Receipt Date: 20070628
  Transmission Date: 20081010
  Serious: No
  Sender: FDA-Public Use
  Company Number: US-ASTRAZENECA-2007UW15342

PATIENT
  Age: 6 Year
  Sex: Male
  Weight: 29.5 kg

DRUGS (1)
  1. PULMICORT-100 [Suspect]
     Indication: ASTHMA
     Route: 055

REACTIONS (6)
  - BLOOD URINE PRESENT [None]
  - CHEST PAIN [None]
  - DRUG INEFFECTIVE [None]
  - HYPOVENTILATION [None]
  - NECK PAIN [None]
  - PENILE PAIN [None]
